FAERS Safety Report 10421470 (Version 4)
Quarter: 2014Q3

REPORT INFORMATION
  Report Type: Spontaneous
  Country: US (occurrence: US)
  Receive Date: 20140901
  Receipt Date: 20140922
  Transmission Date: 20150326
  Serious: Yes (Other)
  Sender: FDA-Public Use
  Company Number: US-UNITED THERAPEUTICS-UNT-2014-005485

PATIENT
  Age: 45 Year
  Sex: Female
  Weight: 72.56 kg

DRUGS (5)
  1. REMODULIN [Suspect]
     Active Substance: TREPROSTINIL
     Indication: PULMONARY ARTERIAL HYPERTENSION
     Dosage: 0.073 ?G/KG/MIN, CONTINUING
     Route: 041
     Dates: start: 20090826
  2. LETAIRIS [Concomitant]
     Active Substance: AMBRISENTAN
     Indication: PRODUCT USED FOR UNKNOWN INDICATION
  3. REMODULIN [Suspect]
     Active Substance: TREPROSTINIL
     Dosage: 0.075 ?G/KG, UNK
     Route: 041
  4. REMODULIN [Suspect]
     Active Substance: TREPROSTINIL
     Dosage: 0.073 ?G/KG, CONTINUING
     Route: 041
     Dates: start: 20090927
  5. ADCIRCA [Concomitant]
     Active Substance: TADALAFIL
     Indication: PRODUCT USED FOR UNKNOWN INDICATION

REACTIONS (6)
  - Device dislocation [Unknown]
  - Drug dose omission [Unknown]
  - Medical device complication [Unknown]
  - Injection site hypoaesthesia [Unknown]
  - Thrombosis in device [Unknown]
  - Medical device complication [Unknown]

NARRATIVE: CASE EVENT DATE: 2014
